FAERS Safety Report 10242108 (Version 1)
Quarter: 2014Q2

REPORT INFORMATION
  Report Type: Spontaneous
  Country: GB (occurrence: GB)
  Receive Date: 20140617
  Receipt Date: 20140617
  Transmission Date: 20141212
  Serious: Yes (Death, Other)
  Sender: FDA-Public Use
  Company Number: GB-ACTAVIS-2014-12648

PATIENT
  Sex: Male

DRUGS (2)
  1. FLUDARABINE (UNKNOWN) [Suspect]
     Indication: ACUTE MYELOID LEUKAEMIA
     Dosage: 150 MG/M2 UNK
     Route: 065
  2. BUSILVEX [Suspect]
     Indication: ACUTE MYELOID LEUKAEMIA
     Dosage: 3.2 MG DAILY
     Route: 042

REACTIONS (5)
  - Multi-organ failure [Fatal]
  - Venoocclusive disease [Fatal]
  - Hepatic failure [Unknown]
  - Bacterial sepsis [Unknown]
  - Off label use [Unknown]
